FAERS Safety Report 10341536 (Version 1)
Quarter: 2014Q3

REPORT INFORMATION
  Report Type: Spontaneous
  Country: US (occurrence: US)
  Receive Date: 20140725
  Receipt Date: 20140725
  Transmission Date: 20150326
  Serious: No
  Sender: FDA-Public Use
  Company Number: US-009507513-1407USA000605

PATIENT
  Sex: Female

DRUGS (1)
  1. STROMECTOL [Suspect]
     Active Substance: IVERMECTIN
     Indication: ACARODERMATITIS
     Dosage: UNK
     Route: 048
     Dates: start: 201405, end: 2014

REACTIONS (6)
  - Dehydration [Unknown]
  - Off label use [Unknown]
  - Asthenia [Unknown]
  - Drug ineffective for unapproved indication [Unknown]
  - Rash [Unknown]
  - Vision blurred [Unknown]

NARRATIVE: CASE EVENT DATE: 201405
